FAERS Safety Report 5707259-9 (Version None)
Quarter: 2008Q2

REPORT INFORMATION
  Report Type: 
  Country: None (occurrence: None)
  Receive Date: 20080414
  Receipt Date: 20080414
  Transmission Date: 20081010
  Serious: Yes (Other)
  Sender: FDA-Public Use
  Company Number: None

PATIENT
  Age: 61 Year
  Sex: Male
  Weight: 90.7194 kg

DRUGS (2)
  1. CRESTOR [Suspect]
     Indication: BLOOD CHOLESTEROL INCREASED
     Dosage: 1 TABLET DAILY PO
     Route: 048
  2. ALL PREVIOUS CHOLESTEROL MEDS. [Suspect]
     Indication: BLOOD CHOLESTEROL INCREASED

REACTIONS (3)
  - EXERCISE TOLERANCE DECREASED [None]
  - MOVEMENT DISORDER [None]
  - MYALGIA [None]
